FAERS Safety Report 12716319 (Version 1)
Quarter: 2016Q3

REPORT INFORMATION
  Report Type: Spontaneous
  Country: AU (occurrence: AU)
  Receive Date: 20160906
  Receipt Date: 20160906
  Transmission Date: 20161109
  Serious: Yes (Life-Threatening)
  Sender: FDA-Public Use
  Company Number: AU-009507513-1609AUS000487

PATIENT
  Age: 45 Year
  Sex: Female
  Weight: 70 kg

DRUGS (7)
  1. PROPOFOL. [Suspect]
     Active Substance: PROPOFOL
     Dosage: 120 MG, 1 TIME
     Dates: start: 20160512
  2. ROCURONIUM BROMIDE. [Suspect]
     Active Substance: ROCURONIUM BROMIDE
     Dosage: 20 MG, ONE TIME
     Dates: start: 20160512
  3. FENTANYL. [Suspect]
     Active Substance: FENTANYL
     Dosage: UNK
     Dates: start: 20160512
  4. CEFAZOLIN [Suspect]
     Active Substance: CEFAZOLIN
     Dosage: 2 G, 1 TIME
     Dates: start: 20160512
  5. MIDAZOLAM [Suspect]
     Active Substance: MIDAZOLAM\MIDAZOLAM HYDROCHLORIDE
     Dosage: 3 MG, 1 TIME
     Dates: start: 20160512
  6. SUXAMETHONIUM CHLORIDE FRESENIUS [Suspect]
     Active Substance: SUCCINYLCHOLINE
     Dosage: 100 MG, 1 TIME
     Dates: start: 20160512
  7. ALFENTANIL HYDROCHLORIDE. [Suspect]
     Active Substance: ALFENTANIL HYDROCHLORIDE
     Dosage: 1 MG, UNK
     Dates: start: 20160512

REACTIONS (3)
  - Tachycardia [Recovered/Resolved]
  - Erythema [Recovered/Resolved]
  - Cardiac arrest [Recovered/Resolved]

NARRATIVE: CASE EVENT DATE: 20160512
